FAERS Safety Report 5079818-0 (Version None)
Quarter: 2006Q3

REPORT INFORMATION
  Report Type: 
  Country: None (occurrence: None)
  Receive Date: 20060815
  Receipt Date: 20060518
  Transmission Date: 20061208
  Serious: Yes (Other)
  Sender: FDA-Public Use
  Company Number: PHEH2006US06642

PATIENT
  Age: 85 Year
  Sex: Female

DRUGS (10)
  1. DECADRON [Concomitant]
     Dates: start: 20030203
  2. TAXOTERE [Concomitant]
  3. GEMZAR [Concomitant]
  4. CARBOPLATIN [Concomitant]
  5. CYTOXAN [Concomitant]
  6. METHOTREXATE [Concomitant]
  7. FLUOROURACIL [Concomitant]
  8. DOXIL [Concomitant]
  9. ZOMETA [Suspect]
     Indication: METASTASES TO BONE
     Dosage: 4MG QMO
     Dates: start: 20030201, end: 20050203
  10. ZOMETA [Suspect]
     Dates: start: 20050421, end: 20060427

REACTIONS (6)
  - BONE DEBRIDEMENT [None]
  - BONE DISORDER [None]
  - IMPAIRED HEALING [None]
  - OSTEONECROSIS [None]
  - PAIN IN JAW [None]
  - TOOTH EXTRACTION [None]
